FAERS Safety Report 5507433-0 (Version None)
Quarter: 2007Q4

REPORT INFORMATION
  Report Type: 
  Country: None (occurrence: None)
  Receive Date: 20071024
  Receipt Date: 20061115
  Transmission Date: 20080405
  Serious: Yes (Hospitalization)
  Sender: FDA-Public Use
  Company Number: US-JNJFOC-20061103684

PATIENT
  Age: 62 Year
  Sex: Female

DRUGS (7)
  1. FLEXERIL [Suspect]
     Indication: MUSCLE SPASMS
     Dosage: 10 MG, 2 IN 1 DAY, ORAL
     Route: 048
     Dates: start: 20060602, end: 20060708
  2. REBIF [Suspect]
     Indication: MULTIPLE SCLEROSIS
     Dosage: 8 UG, SUBCUTANEOUS ; 22 UG, SUBCUTANEOUS ; 44 UG, 3 IN 1 WEEK, SUBCUTANEOUS
     Route: 058
     Dates: end: 20060706
  3. REBIF [Suspect]
     Indication: MULTIPLE SCLEROSIS
     Dosage: 8 UG, SUBCUTANEOUS ; 22 UG, SUBCUTANEOUS ; 44 UG, 3 IN 1 WEEK, SUBCUTANEOUS
     Route: 058
     Dates: start: 20060707, end: 20060709
  4. REBIF [Suspect]
     Indication: MULTIPLE SCLEROSIS
     Dosage: 8 UG, SUBCUTANEOUS ; 22 UG, SUBCUTANEOUS ; 44 UG, 3 IN 1 WEEK, SUBCUTANEOUS
     Route: 058
     Dates: start: 20060609
  5. TYLENOL (CAPLET) [Concomitant]
  6. NITROFURANTOIN [Concomitant]
  7. MOTRIN [Concomitant]

REACTIONS (6)
  - CONFUSIONAL STATE [None]
  - DEHYDRATION [None]
  - FALL [None]
  - GAIT DISTURBANCE [None]
  - INCONTINENCE [None]
  - UNRESPONSIVE TO STIMULI [None]
